FAERS Safety Report 5940100-8 (Version None)
Quarter: 2008Q4

REPORT INFORMATION
  Report Type: 
  Country: None (occurrence: None)
  Receive Date: 20081104
  Receipt Date: 20081030
  Transmission Date: 20090506
  Serious: Yes (Hospitalization)
  Sender: FDA-Public Use
  Company Number: PHEH2008US06265

PATIENT
  Sex: Female

DRUGS (6)
  1. RECLAST [Suspect]
     Indication: OSTEOPOROSIS
     Dosage: 5 MG, ONCE/SINGLE
     Dates: start: 20080522, end: 20080522
  2. REGLAN [Concomitant]
  3. COLACE [Concomitant]
  4. PRILOSEC [Concomitant]
  5. GABAPENTIN [Concomitant]
  6. NORTRIPTYLINE HCL [Concomitant]

REACTIONS (3)
  - CHEST PAIN [None]
  - COSTOCHONDRITIS [None]
  - HYPERPARATHYROIDISM [None]
